FAERS Safety Report 9434407 (Version 1)
Quarter: 2013Q3

REPORT INFORMATION
  Report Type: Spontaneous
  Country: JP (occurrence: JP)
  Receive Date: 20130725
  Receipt Date: 20130725
  Transmission Date: 20140515
  Serious: No
  Sender: FDA-Public Use
  Company Number: TCI2013A02975

PATIENT
  Age: 71 Year
  Sex: Male

DRUGS (2)
  1. ACTOS [Suspect]
     Indication: DIABETES MELLITUS
     Route: 048
     Dates: start: 20090221
  2. MYSLEE (ZOLPIDEM TARTRATE) [Concomitant]

REACTIONS (1)
  - Hyperkalaemia [None]
